FAERS Safety Report 6745017-7 (Version None)
Quarter: 2010Q2

REPORT INFORMATION
  Report Type: 
  Country: None (occurrence: None)
  Receive Date: 20100527
  Receipt Date: 20100514
  Transmission Date: 20101027
  Serious: Yes (Congenital Anomaly, Other)
  Sender: FDA-Public Use
  Company Number: BE-WATSON-2010-07063

PATIENT
  Sex: Female

DRUGS (2)
  1. CABERGOLINE (WATSON LABORATORIES) [Suspect]
     Indication: HYPERPROLACTINAEMIA
     Dosage: 4 MG, UNKNOWN
  2. CLOMIPHENE CITRATE [Suspect]
     Indication: PREGNANCY
     Dosage: UNK

REACTIONS (2)
  - ABORTION INDUCED [None]
  - SPINA BIFIDA [None]
